FAERS Safety Report 4356659-0 (Version None)
Quarter: 2004Q2

REPORT INFORMATION
  Report Type: 
  Country: None (occurrence: None)
  Receive Date: 20040511
  Receipt Date: 20040511
  Transmission Date: 20050107
  Serious: Yes (Other)
  Sender: FDA-Public Use
  Company Number: None

PATIENT
  Age: 51 Year
  Sex: Female

DRUGS (3)
  1. ELOXATIN [Suspect]
     Indication: COLON CANCER METASTATIC
     Dosage: 88 MG IV Q2W
     Route: 042
  2. LEUCOVORIN CALCIUM [Concomitant]
  3. PTK787 [Concomitant]

REACTIONS (6)
  - COUGH [None]
  - ERYTHEMA [None]
  - NASAL CONGESTION [None]
  - NAUSEA [None]
  - RASH PRURITIC [None]
  - SNEEZING [None]
